FAERS Safety Report 9147264 (Version 2)
Quarter: 2013Q1

REPORT INFORMATION
  Report Type: Spontaneous
  Country: BR (occurrence: BR)
  Receive Date: 20130307
  Receipt Date: 20130311
  Transmission Date: 20140127
  Serious: Yes (Other)
  Sender: FDA-Public Use
  Company Number: BR-PFIZER INC-2013077260

PATIENT
  Age: 82 Year
  Sex: Female

DRUGS (1)
  1. FELDENE [Suspect]
     Route: 048

REACTIONS (5)
  - Urinary retention [Unknown]
  - Skin fissures [Unknown]
  - Skin discolouration [Unknown]
  - Swelling [Unknown]
  - Faeces discoloured [Unknown]
